FAERS Safety Report 11908791 (Version 1)
Quarter: 2016Q1

REPORT INFORMATION
  Report Type: Spontaneous
  Country: US (occurrence: US)
  Receive Date: 20160111
  Receipt Date: 20160111
  Transmission Date: 20160526
  Serious: No
  Sender: FDA-Public Use
  Company Number: US-GALDERMA-US15008499

PATIENT
  Age: 74 Year
  Sex: Female

DRUGS (4)
  1. KIRKWOOD FACE CLOTHS [Concomitant]
     Indication: THERAPEUTIC SKIN CARE TOPICAL
     Route: 061
  2. NO DRUG NAME [Concomitant]
  3. WITCH HAZEL. [Concomitant]
     Active Substance: WITCH HAZEL
     Indication: THERAPEUTIC SKIN CARE TOPICAL
     Route: 061
  4. SOOLANTRA [Suspect]
     Active Substance: IVERMECTIN
     Indication: ROSACEA
     Dosage: 1%
     Route: 061
     Dates: start: 201504, end: 20151119

REACTIONS (2)
  - Erythema [Not Recovered/Not Resolved]
  - Skin hypopigmentation [Not Recovered/Not Resolved]

NARRATIVE: CASE EVENT DATE: 2015
